FAERS Safety Report 13639227 (Version 1)
Quarter: 2017Q2

REPORT INFORMATION
  Report Type: Spontaneous
  Country: US (occurrence: US)
  Receive Date: 20170609
  Receipt Date: 20170609
  Transmission Date: 20170830
  Serious: No
  Sender: FDA-Public Use
  Company Number: US-ROCHE-1045326

PATIENT

DRUGS (1)
  1. KLONOPIN [Suspect]
     Active Substance: CLONAZEPAM
     Indication: PRODUCT USED FOR UNKNOWN INDICATION
     Route: 065

REACTIONS (6)
  - Ill-defined disorder [Unknown]
  - Drug use disorder [Unknown]
  - Abdominal pain upper [Unknown]
  - Seizure [Unknown]
  - Anxiety [Unknown]
  - Withdrawal syndrome [Unknown]
